FAERS Safety Report 24567662 (Version 2)
Quarter: 2025Q1

REPORT INFORMATION
  Report Type: Spontaneous
  Country: US (occurrence: IN)
  Receive Date: 20241031
  Receipt Date: 20250108
  Transmission Date: 20250408
  Serious: Yes (Other)
  Sender: Kilitch Healthcare
  Company Number: US-KHC-000325

PATIENT
  Sex: Female

DRUGS (1)
  1. POLYETHYLENE GLYCOL 400\PROPYLENE GLYCOL [Suspect]
     Active Substance: POLYETHYLENE GLYCOL 400\PROPYLENE GLYCOL
     Indication: Product used for unknown indication
     Route: 065

REACTIONS (3)
  - Eye irritation [Unknown]
  - Recalled product administered [Unknown]
  - Optic neuritis [Unknown]
